FAERS Safety Report 24204557 (Version 2)
Quarter: 2024Q3

REPORT INFORMATION
  Report Type: Other
  Country: US (occurrence: US)
  Receive Date: 20240813
  Receipt Date: 20240815
  Transmission Date: 20241016
  Serious: Yes (Hospitalization)
  Sender: MISSION
  Company Number: US-Mission Pharmacal Company-2160325

PATIENT
  Age: 33 Year
  Sex: Female

DRUGS (7)
  1. THIOLA EC [Suspect]
     Active Substance: TIOPRONIN
     Indication: Cystinuria
     Route: 048
     Dates: start: 20170618
  2. HYDROXYZINE [Concomitant]
     Active Substance: HYDROXYZINE HYDROCHLORIDE
  3. LAMOTRIGINE [Concomitant]
     Active Substance: LAMOTRIGINE
  4. CITALOPRAM [Concomitant]
     Active Substance: CITALOPRAM\CITALOPRAM HYDROBROMIDE
  5. METFORMIN [Concomitant]
     Active Substance: METFORMIN HYDROCHLORIDE
  6. QUETIAPINE [Concomitant]
     Active Substance: QUETIAPINE
  7. PREGABALIN [Concomitant]
     Active Substance: PREGABALIN

REACTIONS (2)
  - Drug ineffective [Unknown]
  - Flank pain [Unknown]
